FAERS Safety Report 12076184 (Version 2)
Quarter: 2016Q1

REPORT INFORMATION
  Report Type: Spontaneous
  Country: US (occurrence: US)
  Receive Date: 20160215
  Receipt Date: 20160215
  Transmission Date: 20160526
  Serious: Yes (Other)
  Sender: FDA-Public Use
  Company Number: CHPA2016US002032

PATIENT
  Age: 70 Year
  Sex: Female

DRUGS (1)
  1. VOLTAREN [Suspect]
     Active Substance: DICLOFENAC SODIUM
     Indication: RHEUMATOID ARTHRITIS
     Dosage: 3.5 G, TID
     Route: 061
     Dates: start: 201503, end: 20160205

REACTIONS (7)
  - Flatulence [Not Recovered/Not Resolved]
  - Product use issue [Unknown]
  - Hernia [Unknown]
  - Abdominal discomfort [Not Recovered/Not Resolved]
  - Incorrect dose administered [Unknown]
  - Eructation [Not Recovered/Not Resolved]
  - Inappropriate schedule of drug administration [Unknown]

NARRATIVE: CASE EVENT DATE: 201503
